FAERS Safety Report 10665022 (Version 1)
Quarter: 2014Q4

REPORT INFORMATION
  Report Type: Spontaneous
  Country: SE (occurrence: SE)
  Receive Date: 20141219
  Receipt Date: 20141219
  Transmission Date: 20150529
  Serious: Yes (Other)
  Sender: FDA-Public Use
  Company Number: PHHY2014SE162135

PATIENT
  Age: 76 Year
  Sex: Male

DRUGS (1)
  1. LINATIL COMP [Suspect]
     Active Substance: ENALAPRIL MALEATE\HYDROCHLOROTHIAZIDE
     Indication: HYPERTENSION
     Route: 048
     Dates: start: 20141115, end: 20141127

REACTIONS (2)
  - Blood pressure fluctuation [Unknown]
  - Hypotension [Unknown]

NARRATIVE: CASE EVENT DATE: 20141115
